FAERS Safety Report 14789719 (Version 2)
Quarter: 2018Q4

REPORT INFORMATION
  Report Type: Spontaneous
  Country: FR (occurrence: FR)
  Receive Date: 20180423
  Receipt Date: 20181024
  Transmission Date: 20190204
  Serious: Yes (Other)
  Sender: FDA-Public Use
  Company Number: FR-MERCK KGAA-2046267

PATIENT
  Age: 41 Year
  Sex: Female

DRUGS (1)
  1. EUTHYROX [Suspect]
     Active Substance: LEVOTHYROXINE SODIUM
     Indication: POST PROCEDURAL HYPOTHYROIDISM

REACTIONS (24)
  - Insomnia [None]
  - Drug intolerance [None]
  - Fatigue [Not Recovered/Not Resolved]
  - Weight loss poor [Not Recovered/Not Resolved]
  - Blood thyroid stimulating hormone increased [None]
  - Anxiety [None]
  - Sleep disorder [None]
  - Dyspnoea exertional [None]
  - Stress [None]
  - Hair texture abnormal [None]
  - Irritability [None]
  - Feeling abnormal [None]
  - Pain [Not Recovered/Not Resolved]
  - Trichorrhexis [None]
  - Thyroxine free increased [None]
  - Apathy [None]
  - Blood thyroid stimulating hormone decreased [None]
  - Hypertriglyceridaemia [None]
  - Major depression [Not Recovered/Not Resolved]
  - Alopecia [None]
  - Dry skin [None]
  - Hyperhidrosis [None]
  - Boredom [None]
  - Disturbance in attention [None]

NARRATIVE: CASE EVENT DATE: 20170301
